FAERS Safety Report 16609150 (Version 4)
Quarter: 2025Q2

REPORT INFORMATION
  Report Type: Spontaneous
  Country: FI (occurrence: FI)
  Receive Date: 20190722
  Receipt Date: 20250424
  Transmission Date: 20250717
  Serious: Yes (Other)
  Sender: PFIZER
  Company Number: None

PATIENT
  Sex: Male
  Weight: 2.2 kg

DRUGS (25)
  1. LEVETIRACETAM [Suspect]
     Active Substance: LEVETIRACETAM
     Indication: Status epilepticus
     Dosage: 1000 MG, 2X/DAY
     Route: 064
  2. LEVETIRACETAM [Suspect]
     Active Substance: LEVETIRACETAM
     Indication: Seizure
     Dosage: 3000 MG, DAILY
     Route: 064
  3. LEVETIRACETAM [Suspect]
     Active Substance: LEVETIRACETAM
     Indication: Epilepsy
     Dosage: 1000 MG, 2X/DAY
     Route: 063
  4. LACOSAMIDE [Suspect]
     Active Substance: LACOSAMIDE
     Indication: Status epilepticus
     Dosage: 300 MG, DAILY
     Route: 064
  5. LACOSAMIDE [Suspect]
     Active Substance: LACOSAMIDE
     Indication: Seizure
     Dosage: 100 MG, 2X/DAY
     Route: 064
  6. LACOSAMIDE [Suspect]
     Active Substance: LACOSAMIDE
     Indication: Epilepsy
     Dosage: 100 MG, 2X/DAY
     Route: 063
  7. LORAZEPAM [Concomitant]
     Active Substance: LORAZEPAM
     Indication: Status epilepticus
     Route: 064
  8. LORAZEPAM [Concomitant]
     Active Substance: LORAZEPAM
     Indication: Seizure
     Dosage: 6 MG, DAILY
     Route: 064
  9. LORAZEPAM [Concomitant]
     Active Substance: LORAZEPAM
     Indication: Epilepsy
  10. ENOXAPARIN [Concomitant]
     Active Substance: ENOXAPARIN
     Indication: Cerebral venous thrombosis
     Dosage: 60 MG, 2X/DAY
     Route: 064
  11. ENOXAPARIN [Concomitant]
     Active Substance: ENOXAPARIN
     Indication: Haemorrhage intracranial
     Dosage: 40 MG, 2X/DAY
     Route: 064
  12. ENOXAPARIN [Concomitant]
     Active Substance: ENOXAPARIN
     Dosage: 40 MG, 2X/DAY
     Route: 063
  13. LABETALOL [Concomitant]
     Active Substance: LABETALOL
     Indication: Hypertension
     Route: 064
  14. CEFTRIAXONE [Concomitant]
     Active Substance: CEFTRIAXONE
     Indication: Pneumonia
     Route: 064
  15. PROPOFOL [Concomitant]
     Active Substance: PROPOFOL
     Indication: Status epilepticus
     Route: 064
  16. PROPOFOL [Concomitant]
     Active Substance: PROPOFOL
     Indication: Sedation
  17. DIAZEPAM [Concomitant]
     Active Substance: DIAZEPAM
     Indication: Seizure
     Route: 064
  18. DIAZEPAM [Concomitant]
     Active Substance: DIAZEPAM
     Indication: Status epilepticus
  19. MIDAZOLAM [Concomitant]
     Active Substance: MIDAZOLAM
     Indication: Status epilepticus
     Route: 064
  20. MIDAZOLAM [Concomitant]
     Active Substance: MIDAZOLAM
     Indication: Sedative therapy
  21. HEPARIN [Concomitant]
     Active Substance: HEPARIN SODIUM
     Indication: Cerebral venous thrombosis
     Route: 064
  22. HEPARIN [Concomitant]
     Active Substance: HEPARIN SODIUM
     Indication: Haemorrhage intracranial
  23. FOSPHENYTOIN SODIUM [Concomitant]
     Active Substance: FOSPHENYTOIN SODIUM
     Indication: Epilepsy
     Route: 064
  24. FOSPHENYTOIN SODIUM [Concomitant]
     Active Substance: FOSPHENYTOIN SODIUM
     Indication: Status epilepticus
     Dosage: 250 MG, 2X/DAY
     Route: 064
  25. FOSPHENYTOIN SODIUM [Concomitant]
     Active Substance: FOSPHENYTOIN SODIUM
     Dosage: 600 MG, DAILY
     Route: 064

REACTIONS (5)
  - Maternal exposure during pregnancy [Recovered/Resolved]
  - Exposure via breast milk [Recovered/Resolved]
  - Poor feeding infant [Recovered/Resolved]
  - Somnolence neonatal [Recovered/Resolved]
  - Premature baby [Unknown]
